FAERS Safety Report 8922972 (Version 1)
Quarter: 2012Q4

REPORT INFORMATION
  Report Type: Spontaneous
  Country: US (occurrence: None)
  Receive Date: 20121115
  Receipt Date: 20121115
  Transmission Date: 20130627
  Serious: Yes (Other)
  Sender: FDA-Public Use
  Company Number: JPI-P-026052

PATIENT
  Age: 26 Year
  Sex: Female
  Weight: 61.24 kg

DRUGS (5)
  1. XYREM [Suspect]
     Indication: NARCOLEPSY
     Dosage: 4.5 gm  (2.25 gm,  2 in 1 D),  Oral
     Route: 048
     Dates: start: 20120906, end: 2012
  2. SUMATRIPTAN [Concomitant]
  3. CALCIUM [Concomitant]
  4. MAGNESIUM [Concomitant]
  5. MULTIVITAMIN [Concomitant]

REACTIONS (8)
  - Pollakiuria [None]
  - Apnoea [None]
  - Retching [None]
  - Choking [None]
  - Snoring [None]
  - Amnesia [None]
  - Dizziness [None]
  - Nausea [None]
